FAERS Safety Report 4284902-5 (Version None)
Quarter: 2004Q1

REPORT INFORMATION
  Report Type: 
  Country: None (occurrence: None)
  Receive Date: 20040202
  Receipt Date: 20040126
  Transmission Date: 20041129
  Serious: Yes (Other)
  Sender: FDA-Public Use
  Company Number: 2003121903

PATIENT
  Age: 45 Year
  Sex: Female

DRUGS (2)
  1. VFEND [Suspect]
     Indication: PROPHYLAXIS
     Dates: start: 20031101, end: 20031201
  2. ALL OTHER THERAPEUTIC PRODUCTS [Concomitant]

REACTIONS (2)
  - NO ADVERSE DRUG EFFECT [None]
  - TREATMENT NONCOMPLIANCE [None]
